FAERS Safety Report 9416046 (Version 12)
Quarter: 2014Q2

REPORT INFORMATION
  Report Type: Report from Study
  Country: CA (occurrence: CA)
  Receive Date: 20130724
  Receipt Date: 20140509
  Transmission Date: 20141212
  Serious: Yes (Other)
  Sender: FDA-Public Use
  Company Number: CA-ROCHE-1251216

PATIENT
  Age: 60 Year
  Sex: Female
  Weight: 77.8 kg

DRUGS (20)
  1. ACTEMRA [Suspect]
     Indication: RHEUMATOID ARTHRITIS
     Route: 042
     Dates: start: 20130306
  2. ACTEMRA [Suspect]
     Route: 042
     Dates: start: 20140107
  3. PREDNISONE [Suspect]
     Indication: PRODUCT USED FOR UNKNOWN INDICATION
     Route: 048
     Dates: end: 20140203
  4. PREDNISONE [Suspect]
     Route: 048
  5. PREDNISONE [Suspect]
     Route: 047
  6. ARAVA [Concomitant]
  7. ATROVENT [Concomitant]
  8. ADVAIR [Concomitant]
  9. LIPITOR [Concomitant]
  10. RAMIPRIL [Concomitant]
  11. SYNTHROID [Concomitant]
     Indication: HYPOTHYROIDISM
     Route: 048
  12. RABEPRAZOLE [Concomitant]
  13. OMEGA 3 [Concomitant]
  14. IBUPROFEN [Concomitant]
  15. NAPROXEN [Concomitant]
     Indication: RHEUMATOID ARTHRITIS
     Route: 048
  16. LEFLUNOMIDE [Concomitant]
     Indication: RHEUMATOID ARTHRITIS
     Route: 048
  17. LEFLUNOMIDE [Concomitant]
     Route: 048
  18. ATORVASTATIN [Concomitant]
     Indication: DYSLIPIDAEMIA
     Route: 048
  19. METFORMIN [Concomitant]
     Route: 048
  20. GLIBENCLAMIDE [Concomitant]
     Route: 065

REACTIONS (7)
  - Ulcerative keratitis [Recovering/Resolving]
  - Lung infection [Recovered/Resolved]
  - Blood glucose increased [Unknown]
  - Dry eye [Not Recovered/Not Resolved]
  - Cough [Not Recovered/Not Resolved]
  - Rheumatoid arthritis [Unknown]
  - Drug effect decreased [Unknown]
